FAERS Safety Report 4879598-5 (Version None)
Quarter: 2006Q1

REPORT INFORMATION
  Report Type: 
  Country: None (occurrence: None)
  Receive Date: 20060111
  Receipt Date: 20051227
  Transmission Date: 20060701
  Serious: Yes (Life-Threatening, Hospitalization)
  Sender: FDA-Public Use
  Company Number: FR200512004139

PATIENT
  Age: 72 Year
  Sex: Male
  Weight: 90 kg

DRUGS (7)
  1. ALIMTA [Suspect]
     Indication: LUNG ADENOCARCINOMA
     Dosage: 1000 MG OTHER INTRAVENOUS
     Route: 042
     Dates: start: 20051005
  2. FOLIC ACID [Concomitant]
  3. VITAMIN B12(CYANCOBALAMIN) [Concomitant]
  4. PREVISCAN (FLUINDIONE) [Concomitant]
  5. MORPHINE SULFATE [Concomitant]
  6. SERECOR (HYDROQUINIDINE HYDROCHLORIDE) [Concomitant]
  7. FUROSEMIDE [Concomitant]

REACTIONS (7)
  - COMA [None]
  - ENCEPHALOPATHY [None]
  - FLUID INTAKE REDUCED [None]
  - GENERAL PHYSICAL HEALTH DETERIORATION [None]
  - HICCUPS [None]
  - MUCOCUTANEOUS CANDIDIASIS [None]
  - PNEUMONIA [None]
